FAERS Safety Report 24653520 (Version 2)
Quarter: 2025Q3

REPORT INFORMATION
  Report Type: Report from Study
  Country: US (occurrence: US)
  Receive Date: 20241122
  Receipt Date: 20250803
  Transmission Date: 20251021
  Serious: Yes (Hospitalization, Other)
  Sender: ALEXION PHARMACEUTICALS
  Company Number: US-ASTRAZENECA-202411USA012097US

PATIENT
  Sex: Male

DRUGS (1)
  1. TAGRISSO [Suspect]
     Active Substance: OSIMERTINIB
     Indication: Lung carcinoma cell type unspecified stage I
     Dosage: 80 MILLIGRAM, QD
     Dates: start: 202309

REACTIONS (4)
  - Pulmonary thrombosis [Unknown]
  - Ocular hyperaemia [Unknown]
  - Dyspepsia [Unknown]
  - Eye irritation [Unknown]
